FAERS Safety Report 6908273-8 (Version None)
Quarter: 2010Q3

REPORT INFORMATION
  Report Type: 
  Country: None (occurrence: None)
  Receive Date: 20100708
  Receipt Date: 20090419
  Transmission Date: 20110219
  Serious: Yes (Other)
  Sender: FDA-Public Use
  Company Number: 2009163309

PATIENT

DRUGS (1)
  1. CHANTIX [Suspect]
     Indication: TOBACCO USER

REACTIONS (2)
  - AGITATION [None]
  - DEPRESSED MOOD [None]
